FAERS Safety Report 10867565 (Version 5)
Quarter: 2015Q3

REPORT INFORMATION
  Report Type: Report from Study
  Country: DK (occurrence: IT)
  Receive Date: 20150225
  Receipt Date: 20150728
  Transmission Date: 20151125
  Serious: Yes (Hospitalization)
  Sender: FDA-Public Use
  Company Number: IT-FRI-1000074691

PATIENT
  Age: 37 Year
  Sex: Female

DRUGS (5)
  1. ESCITALOPRAM [Suspect]
     Active Substance: ESCITALOPRAM OXALATE
     Indication: OVERDOSE
     Dosage: OVERDOSE: 30 ML
     Route: 048
     Dates: start: 20150125, end: 20150125
  2. MIRTAZAPINE. [Suspect]
     Active Substance: MIRTAZAPINE
     Indication: PRODUCT USED FOR UNKNOWN INDICATION
     Dosage: OVERDOSE: 12 DOSAGE FORM
     Route: 048
     Dates: start: 20150506, end: 20150506
  3. LEXOTAN [Suspect]
     Active Substance: BROMAZEPAM
     Indication: DRUG ABUSE
     Dosage: OVERDOSE: 30 ML
     Route: 048
     Dates: start: 20150125, end: 20150125
  4. QUETIPINE [Suspect]
     Active Substance: QUETIAPINE
     Indication: PRODUCT USED FOR UNKNOWN INDICATION
     Dosage: OVERDOSE: 40 DOSAGE FORM
     Route: 048
     Dates: start: 20150506, end: 20150506
  5. XANAX [Suspect]
     Active Substance: ALPRAZOLAM
     Indication: PRODUCT USED FOR UNKNOWN INDICATION
     Dosage: OVERDOSE: 46 DOSAGE FORM
     Route: 048
     Dates: start: 20150506, end: 20150506

REACTIONS (4)
  - Sopor [Recovered/Resolved]
  - Sopor [Recovered/Resolved]
  - Drug abuse [Recovered/Resolved]
  - Intentional overdose [Recovered/Resolved]

NARRATIVE: CASE EVENT DATE: 20150125
